FAERS Safety Report 24932631 (Version 1)
Quarter: 2025Q1

REPORT INFORMATION
  Report Type: Spontaneous
  Country: US (occurrence: US)
  Receive Date: 20250205
  Receipt Date: 20250205
  Transmission Date: 20250409
  Serious: No
  Sender: EXELIXIS
  Company Number: US-EXELIXIS-EXL-2024-000169

PATIENT
  Sex: Male
  Weight: 90.703 kg

DRUGS (7)
  1. CABOMETYX [Suspect]
     Active Substance: CABOZANTINIB S-MALATE
     Indication: Hepatocellular carcinoma
     Dates: start: 20240813
  2. LENVIMA [Suspect]
     Active Substance: LENVATINIB
     Indication: Hepatocellular carcinoma
     Dosage: 12 MG, QD
     Route: 048
     Dates: start: 202405
  3. LORATADINE [Concomitant]
     Active Substance: LORATADINE
  4. SPIRONOLACTONE [Concomitant]
     Active Substance: SPIRONOLACTONE
  5. MONTELUKAST [Concomitant]
     Active Substance: MONTELUKAST
  6. MAGNESIUM [Concomitant]
     Active Substance: MAGNESIUM
  7. CALCIUM [Concomitant]
     Active Substance: CALCIUM

REACTIONS (2)
  - Drug intolerance [Unknown]
  - Haemoptysis [Unknown]
